FAERS Safety Report 18500021 (Version 3)
Quarter: 2020Q4

REPORT INFORMATION
  Report Type: Spontaneous
  Country: CN (occurrence: CN)
  Receive Date: 20201113
  Receipt Date: 20201210
  Transmission Date: 20210114
  Serious: Yes (Other)
  Sender: FDA-Public Use
  Company Number: CN-ASTRAZENECA-2020SF44547

PATIENT
  Age: 69 Year
  Sex: Male
  Weight: 69 kg

DRUGS (4)
  1. NIMESULIDE [Concomitant]
     Active Substance: NIMESULIDE
     Indication: NASOPHARYNGITIS
     Dosage: ONCE A DAY, ONE PACKAGE (GRANULAR PACKAGE) AT ONCE, HAD USED IT INTERMITTENTLY FOR 4 OR 5 MONTHS
     Route: 048
  2. IRESSA [Suspect]
     Active Substance: GEFITINIB
     Indication: NON-SMALL CELL LUNG CANCER
     Route: 048
  3. IRESSA [Suspect]
     Active Substance: GEFITINIB
     Indication: NON-SMALL CELL LUNG CANCER
     Route: 048
     Dates: start: 201908
  4. NIMESULIDE [Concomitant]
     Active Substance: NIMESULIDE
     Indication: PYREXIA
     Dosage: ONCE A DAY, ONE PACKAGE (GRANULAR PACKAGE) AT ONCE, HAD USED IT INTERMITTENTLY FOR 4 OR 5 MONTHS
     Route: 048

REACTIONS (9)
  - Metastases to bone [Unknown]
  - Malignant neoplasm progression [Unknown]
  - Cough [Unknown]
  - Pulmonary tuberculosis [Unknown]
  - Pyrexia [Recovered/Resolved]
  - Drug resistance [Unknown]
  - Hyperhidrosis [Unknown]
  - Nasopharyngitis [Unknown]
  - Diarrhoea [Recovered/Resolved]

NARRATIVE: CASE EVENT DATE: 2020
